FAERS Safety Report 23229906 (Version 2)
Quarter: 2023Q4

REPORT INFORMATION
  Report Type: Spontaneous
  Country: US (occurrence: None)
  Receive Date: 20231127
  Receipt Date: 20231201
  Transmission Date: 20240110
  Serious: Yes (Other)
  Sender: FDA-Public Use
  Company Number: US-ROCHE-3462221

PATIENT
  Age: 72 Year
  Sex: Female

DRUGS (6)
  1. VABYSMO [Suspect]
     Active Substance: FARICIMAB\FARICIMAB-SVOA
     Indication: Neovascular age-related macular degeneration
     Route: 065
  2. AVASTIN [Suspect]
     Active Substance: BEVACIZUMAB
     Indication: Neovascular age-related macular degeneration
     Route: 065
  3. DILTIAZEM [Concomitant]
     Active Substance: DILTIAZEM
  4. SIMVASTATIN [Concomitant]
     Active Substance: SIMVASTATIN
  5. LOSARTAN [Concomitant]
     Active Substance: LOSARTAN
  6. BENZONATATE [Concomitant]
     Active Substance: BENZONATATE

REACTIONS (11)
  - Retinal vein occlusion [Unknown]
  - Cerebrovascular accident [Unknown]
  - Ocular ischaemic syndrome [Unknown]
  - Visual impairment [Unknown]
  - Retinal artery occlusion [Recovered/Resolved]
  - Pneumonia [Unknown]
  - Rash [Unknown]
  - Retinal vascular disorder [Unknown]
  - Retinal haemorrhage [Unknown]
  - Macular ischaemia [Unknown]
  - Off label use [Unknown]

NARRATIVE: CASE EVENT DATE: 20231001
